FAERS Safety Report 7571855-7 (Version None)
Quarter: 2011Q2

REPORT INFORMATION
  Report Type: 
  Country: None (occurrence: None)
  Receive Date: 20110620
  Receipt Date: 20110603
  Transmission Date: 20111010
  Serious: Yes (Hospitalization)
  Sender: FDA-Public Use
  Company Number: 2011MA006774

PATIENT
  Age: 81 Year
  Sex: Female

DRUGS (2)
  1. ACETYLSALICYLIC ACID SRT [Concomitant]
  2. TICLOPIDINE HYDROCHLORIDE [Suspect]
     Indication: STENT PLACEMENT

REACTIONS (4)
  - IN-STENT CORONARY ARTERY RESTENOSIS [None]
  - HEPATITIS CHOLESTATIC [None]
  - CHOLANGITIS [None]
  - POST PROCEDURAL COMPLICATION [None]
